FAERS Safety Report 4606527-1 (Version None)
Quarter: 2005Q2

REPORT INFORMATION
  Report Type: 
  Country: None (occurrence: None)
  Receive Date: 20050223
  Receipt Date: 20040923
  Transmission Date: 20051028
  Serious: Yes (Disabling, Other)
  Sender: FDA-Public Use
  Company Number: WAES0409USA02101

PATIENT
  Age: 70 Year
  Sex: Male
  Weight: 68.0396 kg

DRUGS (8)
  1. ZOCOR [Suspect]
     Dosage: SEE IMAGE
     Route: 048
     Dates: start: 20030101, end: 20040701
  2. ZOCOR [Suspect]
     Dosage: SEE IMAGE
     Route: 048
     Dates: start: 20040701, end: 20040824
  3. ZOCOR [Suspect]
     Dosage: SEE IMAGE
     Route: 048
     Dates: start: 20040824, end: 20040921
  4. BENADRYL [Concomitant]
  5. HYZAAR [Concomitant]
  6. PLAVIX [Concomitant]
  7. TARKA [Concomitant]
  8. Z-PAK [Concomitant]

REACTIONS (1)
  - RHABDOMYOLYSIS [None]
